FAERS Safety Report 8779803 (Version 5)
Quarter: 2013Q1

REPORT INFORMATION
  Report Type: Report from Study
  Country: US (occurrence: US)
  Receive Date: 20120912
  Receipt Date: 20130131
  Transmission Date: 20140127
  Serious: Yes (Hospitalization)
  Sender: FDA-Public Use
  Company Number: US-ACTELION-A-US2012-70933

PATIENT
  Age: 64 Year
  Sex: Female

DRUGS (6)
  1. TRACLEER [Suspect]
     Indication: PULMONARY ARTERIAL HYPERTENSION
     Dosage: UNK
     Route: 048
  2. COUMADIN [Suspect]
  3. ADCIRCA [Concomitant]
  4. TYVASO [Concomitant]
  5. LASIX [Concomitant]
  6. LOVENOX [Concomitant]

REACTIONS (19)
  - Flavivirus test positive [Unknown]
  - Aneurysm [Unknown]
  - Headache [Not Recovered/Not Resolved]
  - Overdose [Unknown]
  - Haemorrhage [Unknown]
  - Medication error [Unknown]
  - Vomiting [Unknown]
  - Abdominal distension [Unknown]
  - Transfusion [Unknown]
  - Abdominal pain upper [Unknown]
  - Ocular hyperaemia [Unknown]
  - Vision blurred [Unknown]
  - Weight decreased [Unknown]
  - Loss of consciousness [Unknown]
  - Balance disorder [Unknown]
  - Rectal haemorrhage [Unknown]
  - Vaginal haemorrhage [Unknown]
  - Haemoptysis [Unknown]
  - Epistaxis [Unknown]
